FAERS Safety Report 5163185-8 (Version None)
Quarter: 2006Q4

REPORT INFORMATION
  Report Type: 
  Country: None (occurrence: None)
  Receive Date: 20061204
  Receipt Date: 20061121
  Transmission Date: 20070319
  Serious: Yes (Other)
  Sender: FDA-Public Use
  Company Number: US-JNJFOC-20061105991

PATIENT
  Sex: Female
  Weight: 59.88 kg

DRUGS (4)
  1. TOPAMAX [Suspect]
  2. TOPAMAX [Suspect]
     Indication: MIGRAINE
  3. MAXALT [Concomitant]
     Indication: MIGRAINE PROPHYLAXIS
  4. REGLAN [Concomitant]
     Indication: NAUSEA

REACTIONS (4)
  - ARRHYTHMIA [None]
  - HEART RATE IRREGULAR [None]
  - MIGRAINE [None]
  - VENTRICULAR EXTRASYSTOLES [None]
